FAERS Safety Report 9710381 (Version 1)
Quarter: 2013Q4

REPORT INFORMATION
  Report Type: Spontaneous
  Country: US (occurrence: US)
  Receive Date: 20131126
  Receipt Date: 20131126
  Transmission Date: 20140711
  Serious: Yes (Other)
  Sender: FDA-Public Use
  Company Number: US-ELI_LILLY_AND_COMPANY-US201311005572

PATIENT
  Sex: Female

DRUGS (2)
  1. HUMULIN NPH [Suspect]
     Indication: PRODUCT USED FOR UNKNOWN INDICATION
     Route: 065
  2. LANTUS [Concomitant]

REACTIONS (6)
  - Nausea [Unknown]
  - Injection site pain [Unknown]
  - Night sweats [Unknown]
  - Faeces discoloured [Unknown]
  - Drug dose omission [Recovered/Resolved]
  - Incorrect product storage [Unknown]
